FAERS Safety Report 4337371-0 (Version None)
Quarter: 2004Q2

REPORT INFORMATION
  Report Type: 
  Country: None (occurrence: None)
  Receive Date: 20040413
  Receipt Date: 20040407
  Transmission Date: 20050107
  Serious: Yes (Hospitalization)
  Sender: FDA-Public Use
  Company Number: 200411460FR

PATIENT
  Age: 54 Year
  Sex: Female

DRUGS (1)
  1. CALSYN [Suspect]
     Indication: REFLEX SYMPATHETIC DYSTROPHY
     Route: 030
     Dates: start: 20040301, end: 20040301

REACTIONS (3)
  - PRURITUS [None]
  - RASH ERYTHEMATOUS [None]
  - RASH PAPULAR [None]
